FAERS Safety Report 15128277 (Version 1)
Quarter: 2018Q3

REPORT INFORMATION
  Report Type: Spontaneous
  Country: US (occurrence: US)
  Receive Date: 20180711
  Receipt Date: 20180711
  Transmission Date: 20181010
  Serious: No
  Sender: FDA-Public Use
  Company Number: US-GLENMARK PHARMACEUTICALS-2017GMK029756

PATIENT

DRUGS (2)
  1. LITHIUM CARBONATE. [Suspect]
     Active Substance: LITHIUM CARBONATE
     Indication: PRODUCT USED FOR UNKNOWN INDICATION
     Dosage: 2 DF, QD
     Route: 048
     Dates: start: 20171101
  2. ARMODAFINIL. [Concomitant]
     Active Substance: ARMODAFINIL
     Indication: NARCOLEPSY
     Dosage: 1 DF, OD
     Route: 048

REACTIONS (7)
  - Chest discomfort [Unknown]
  - Dyspnoea [Unknown]
  - Abdominal pain upper [Unknown]
  - Tinnitus [Unknown]
  - Abdominal distension [Unknown]
  - Gastric disorder [Unknown]
  - Condition aggravated [Unknown]

NARRATIVE: CASE EVENT DATE: 20171107
